FAERS Safety Report 7038988-5 (Version None)
Quarter: 2010Q4

REPORT INFORMATION
  Report Type: 
  Country: None (occurrence: None)
  Receive Date: 20101012
  Receipt Date: 20101004
  Transmission Date: 20110411
  Serious: Yes (Life-Threatening, Hospitalization)
  Sender: FDA-Public Use
  Company Number: US-US-EMD SERONO, INC.-7003289

PATIENT
  Sex: Female
  Weight: 50 kg

DRUGS (4)
  1. REBIF [Suspect]
     Indication: MULTIPLE SCLEROSIS
     Route: 058
     Dates: start: 20081014
  2. UNSPECIFIED MEDICATION [Concomitant]
     Indication: DEPRESSION
     Dates: end: 20100101
  3. UNSPECIFIED MEDICATION [Concomitant]
     Indication: INSOMNIA
     Dates: end: 20100101
  4. SEROQUEL [Concomitant]
     Dates: start: 20100601, end: 20100101

REACTIONS (9)
  - ACCIDENTAL OVERDOSE [None]
  - BONE PAIN [None]
  - FALL [None]
  - HALLUCINATION [None]
  - JOINT ABSCESS [None]
  - MUSCLE SPASMS [None]
  - SEPSIS [None]
  - URINARY INCONTINENCE [None]
  - WEIGHT DECREASED [None]
